FAERS Safety Report 4618998-5 (Version None)
Quarter: 2005Q1

REPORT INFORMATION
  Report Type: 
  Country: None (occurrence: None)
  Receive Date: 20050325
  Receipt Date: 20050317
  Transmission Date: 20050727
  Serious: Yes (Hospitalization)
  Sender: FDA-Public Use
  Company Number: 200512450GDDC

PATIENT
  Age: 66 Year
  Sex: Male

DRUGS (4)
  1. LEVAQUIN [Suspect]
     Dosage: DOSE: UNK
     Dates: start: 20050113
  2. FLAGYL [Suspect]
     Dosage: DOSE: UNK
  3. GEMZAR [Suspect]
     Indication: SMALL CELL LUNG CANCER STAGE UNSPECIFIED
     Dosage: DOSE: UNK
  4. DOCETAXEL [Suspect]
     Indication: SMALL CELL LUNG CANCER STAGE UNSPECIFIED
     Dosage: DOSE: UNK

REACTIONS (2)
  - DRUG TOXICITY [None]
  - ENTEROCOLITIS [None]
